FAERS Safety Report 8381801-4 (Version None)
Quarter: 2012Q2

REPORT INFORMATION
  Report Type: 
  Country: None (occurrence: None)
  Receive Date: 20120522
  Receipt Date: 20120522
  Transmission Date: 20120825
  Serious: Yes (Hospitalization, Disabling)
  Sender: FDA-Public Use
  Company Number: None

PATIENT
  Sex: Female
  Weight: 113.3993 kg

DRUGS (1)
  1. CIPROFLOXACIN [Suspect]
     Indication: URINARY TRACT INFECTION
     Dosage: 1 TABLET TWO TIMES PER DAY PO
     Route: 048
     Dates: start: 20080703, end: 20080704

REACTIONS (24)
  - CHOREA [None]
  - HEMIPLEGIA [None]
  - ALTERED STATE OF CONSCIOUSNESS [None]
  - COORDINATION ABNORMAL [None]
  - PAIN [None]
  - MIGRAINE WITH AURA [None]
  - ENCEPHALOPATHY [None]
  - MALAISE [None]
  - SENSATION OF PRESSURE [None]
  - MUSCULAR WEAKNESS [None]
  - DYSARTHRIA [None]
  - LOSS OF CONSCIOUSNESS [None]
  - NEUROLOGICAL SYMPTOM [None]
  - NO THERAPEUTIC RESPONSE [None]
  - BALLISMUS [None]
  - FATIGUE [None]
  - CARDIOVASCULAR DISORDER [None]
  - DYSTONIA [None]
  - PARTIAL SEIZURES [None]
  - VISUAL IMPAIRMENT [None]
  - COGNITIVE DISORDER [None]
  - TREMOR [None]
  - APHASIA [None]
  - DIZZINESS [None]
